FAERS Safety Report 6921796-0 (Version None)
Quarter: 2010Q3

REPORT INFORMATION
  Report Type: 
  Country: None (occurrence: None)
  Receive Date: 20100812
  Receipt Date: 20100809
  Transmission Date: 20110219
  Serious: Yes (Hospitalization)
  Sender: FDA-Public Use
  Company Number: DE-TEVA-244154ISR

PATIENT
  Age: 40 Year
  Sex: Male

DRUGS (2)
  1. LOSARTAN POTASSIUM [Suspect]
     Indication: PORTAL HYPERTENSION
  2. RAMIPRIL [Suspect]

REACTIONS (1)
  - HEPATIC ENCEPHALOPATHY [None]
